FAERS Safety Report 23695734 (Version 1)
Quarter: 2024Q2

REPORT INFORMATION
  Report Type: Spontaneous
  Country: LK (occurrence: LK)
  Receive Date: 20240402
  Receipt Date: 20240402
  Transmission Date: 20240716
  Serious: Yes (Life-Threatening, Hospitalization, Other)
  Sender: FDA-Public Use
  Company Number: LK-MACLEODS PHARMACEUTICALS US LTD-MAC2024046651

PATIENT

DRUGS (5)
  1. VENLAFAXINE [Interacting]
     Active Substance: VENLAFAXINE HYDROCHLORIDE
     Indication: Depression
     Dosage: 75 MILLIGRAM, QD
     Route: 065
  2. CARBIDOPA\LEVODOPA [Interacting]
     Active Substance: CARBIDOPA\LEVODOPA
     Indication: Parkinsonism
     Dosage: UNK UNK, TID (25/100 MG)
     Route: 065
  3. AMANTADINE [Interacting]
     Active Substance: AMANTADINE
     Indication: Parkinsonism
     Dosage: 100 MILLIGRAM, BID
     Route: 065
  4. TRIHEXYPHENIDYL [Interacting]
     Active Substance: TRIHEXYPHENIDYL
     Indication: Parkinsonism
     Dosage: 2 MILLIGRAM, QD
     Route: 065
  5. ROPINIROLE [Interacting]
     Active Substance: ROPINIROLE
     Indication: Parkinsonism
     Dosage: 0.5 MILLIGRAM, TID
     Route: 065

REACTIONS (10)
  - Acute kidney injury [Unknown]
  - Rhabdomyolysis [Unknown]
  - Metabolic acidosis [Unknown]
  - Shock [Unknown]
  - Myoglobinuria [Unknown]
  - Serotonin syndrome [Unknown]
  - Neuroleptic malignant syndrome [Unknown]
  - Drug interaction [Unknown]
  - Drug-disease interaction [Unknown]
  - Encephalopathy [Recovered/Resolved]
